FAERS Safety Report 26058584 (Version 1)
Quarter: 2025Q4

REPORT INFORMATION
  Report Type: Spontaneous
  Country: CN (occurrence: CN)
  Receive Date: 20251118
  Receipt Date: 20251118
  Transmission Date: 20260117
  Serious: Yes (Life-Threatening, Other)
  Sender: ASTELLAS
  Company Number: CN-ASTELLAS-2025-AER-063805

PATIENT
  Age: 61 Year
  Sex: Male
  Weight: 50 kg

DRUGS (3)
  1. VYLOY [Suspect]
     Active Substance: ZOLBETUXIMAB-CLZB
     Indication: Gastric cancer
     Dosage: SINGLE DOSE ?FIRST USE
     Route: 042
     Dates: start: 20251004
  2. VYLOY [Suspect]
     Active Substance: ZOLBETUXIMAB-CLZB
     Dosage: SINGLE DOSE ?SECOND USE
     Route: 042
     Dates: start: 20251023
  3. VYLOY [Suspect]
     Active Substance: ZOLBETUXIMAB-CLZB
     Dosage: SINGLE DOSE ?THIRD USE
     Route: 042
     Dates: start: 20251116

REACTIONS (4)
  - Hypotension [Recovering/Resolving]
  - Blood glucose decreased [Recovering/Resolving]
  - Pyrexia [Recovering/Resolving]
  - Cold sweat [Recovering/Resolving]

NARRATIVE: CASE EVENT DATE: 20250101
